FAERS Safety Report 19681462 (Version 3)
Quarter: 2022Q1

REPORT INFORMATION
  Report Type: Report from Study
  Country: KR (occurrence: None)
  Receive Date: 20210810
  Receipt Date: 20220128
  Transmission Date: 20220424
  Serious: Yes (Hospitalization)
  Sender: FDA-Public Use
  Company Number: KR-EISAI MEDICAL RESEARCH-EC-2021-097534

PATIENT
  Age: 76 Year
  Sex: Female
  Weight: 55.1 kg

DRUGS (16)
  1. LENVATINIB [Suspect]
     Active Substance: LENVATINIB
     Indication: Malignant melanoma stage III
     Route: 048
     Dates: start: 20210430, end: 20210830
  2. LENVATINIB [Suspect]
     Active Substance: LENVATINIB
     Indication: Malignant melanoma stage IV
  3. PEMBROLIZUMAB [Suspect]
     Active Substance: PEMBROLIZUMAB
     Indication: Malignant melanoma stage III
     Route: 042
     Dates: start: 20210430, end: 20210618
  4. PEMBROLIZUMAB [Suspect]
     Active Substance: PEMBROLIZUMAB
     Indication: Malignant melanoma stage IV
     Route: 042
     Dates: start: 20210709, end: 20210709
  5. ZEMIMET [Concomitant]
     Dates: start: 201701, end: 20210827
  6. DIABEX [Concomitant]
     Active Substance: METFORMIN HYDROCHLORIDE
     Dates: start: 201701, end: 20210827
  7. MIARYL [Concomitant]
     Dates: start: 201701, end: 20210827
  8. SUVASTIN [Concomitant]
     Dates: start: 201701, end: 20210827
  9. BEARDIPINE [Concomitant]
     Dates: start: 20210510, end: 20210827
  10. DIOVAN [Concomitant]
     Active Substance: VALSARTAN
     Dates: start: 20210521
  11. SMOFLIPID [Concomitant]
     Active Substance: FISH OIL\MEDIUM-CHAIN TRIGLYCERIDES\OLIVE OIL\SOYBEAN OIL
     Dates: start: 20210709, end: 20210715
  12. PREDNISOLONE [Concomitant]
     Active Substance: PREDNISOLONE
     Dates: start: 20210709
  13. WITH [Concomitant]
     Dates: start: 20210709, end: 20210827
  14. VITAMINS [Concomitant]
     Active Substance: VITAMINS
     Dates: start: 20210709, end: 20210715
  15. MEGACE F [Concomitant]
     Route: 048
     Dates: start: 20210715, end: 20210730
  16. DICHLOZID [Concomitant]
     Dates: start: 20210709

REACTIONS (1)
  - Cholecystitis acute [Recovered/Resolved]

NARRATIVE: CASE EVENT DATE: 20210723
